FAERS Safety Report 7347973-5 (Version None)
Quarter: 2011Q1

REPORT INFORMATION
  Report Type: 
  Country: None (occurrence: None)
  Receive Date: 20110311
  Receipt Date: 20110303
  Transmission Date: 20110831
  Serious: Yes (Hospitalization)
  Sender: FDA-Public Use
  Company Number: US-BAYER-2011-022027

PATIENT
  Sex: Female
  Weight: 92.971 kg

DRUGS (7)
  1. PROTONIX [Concomitant]
     Dosage: 40 MG, UNK
     Route: 048
  2. YASMIN [Suspect]
     Indication: CONTRACEPTION
     Dosage: UNK
  3. ANALPRAM-HC [Concomitant]
     Route: 061
  4. POLYETHYLENE GLYCOL [Concomitant]
     Dosage: UNK
     Route: 048
  5. FEXOFENADINE [Concomitant]
     Dosage: 180 MG, UNK
     Route: 048
  6. NASONEX [Concomitant]
     Dosage: 50 ?G, UNK
  7. HYDROCORTISONE [Concomitant]
     Dosage: 25 MG, UNK

REACTIONS (2)
  - CHOLECYSTITIS CHRONIC [None]
  - ABDOMINAL PAIN UPPER [None]
